FAERS Safety Report 17005967 (Version 1)
Quarter: 2019Q4

REPORT INFORMATION
  Report Type: Spontaneous
  Country: US (occurrence: US)
  Receive Date: 20191107
  Receipt Date: 20191107
  Transmission Date: 20200122
  Serious: No
  Sender: FDA-Public Use
  Company Number: US-SA-2019SA304686

PATIENT
  Age: 53 Year
  Sex: Female

DRUGS (2)
  1. PRALUENT [Suspect]
     Active Substance: ALIROCUMAB
     Indication: BLOOD CHOLESTEROL INCREASED
     Dosage: 75 MG, QM
     Dates: start: 201908
  2. PRALUENT [Suspect]
     Active Substance: ALIROCUMAB
     Dosage: 150 MG, QM
     Dates: start: 2019

REACTIONS (4)
  - Nasopharyngitis [Unknown]
  - Drug ineffective [Unknown]
  - Nasal congestion [Unknown]
  - Product use issue [Unknown]

NARRATIVE: CASE EVENT DATE: 2019
